FAERS Safety Report 9218308 (Version 1)
Quarter: 2013Q2

REPORT INFORMATION
  Report Type: Spontaneous
  Country: DE (occurrence: DE)
  Receive Date: 20130409
  Receipt Date: 20130409
  Transmission Date: 20140414
  Serious: Yes (Hospitalization)
  Sender: FDA-Public Use
  Company Number: DE-RANBAXY-2013R1-67123

PATIENT
  Age: 7 Year
  Sex: Male
  Weight: 22 kg

DRUGS (18)
  1. FLUCONAZOLE [Suspect]
     Indication: URINARY TRACT INFECTION FUNGAL
     Dosage: 125MG EVERY 72HOURS
     Route: 042
     Dates: start: 20110429, end: 20110516
  2. CICLOSPORIN [Suspect]
     Indication: RENAL TRANSPLANT
     Dosage: 80-0-75
     Route: 048
     Dates: start: 20110413, end: 20110531
  3. FLUCONAZOLE [Concomitant]
     Indication: URINARY TRACT INFECTION FUNGAL
     Dosage: 60MG EVERY 24 HOURS
     Route: 042
     Dates: start: 20110425
  4. CELLCEPT [Concomitant]
     Indication: PRODUCT USED FOR UNKNOWN INDICATION
     Dosage: 1000MG, EVERY DAY
     Route: 048
     Dates: start: 20110412
  5. OMEPRAZOLE [Concomitant]
     Indication: PRODUCT USED FOR UNKNOWN INDICATION
     Dosage: 20MG, EVERY DAYS
     Route: 048
     Dates: start: 20110413
  6. NABIC [Concomitant]
     Indication: PRODUCT USED FOR UNKNOWN INDICATION
     Dosage: 20ML, EVERY DAYS
     Route: 065
     Dates: start: 20110512
  7. KEPINOL [Concomitant]
     Indication: PRODUCT USED FOR UNKNOWN INDICATION
     Dosage: 80MG, EVERY DAYS
     Route: 048
     Dates: start: 20110413
  8. ACICLOVIR [Concomitant]
     Indication: PRODUCT USED FOR UNKNOWN INDICATION
     Dosage: 400MG, EVERY DAYS
     Route: 048
     Dates: start: 20110520
  9. NEORECORMON 5000 [Concomitant]
     Indication: PRODUCT USED FOR UNKNOWN INDICATION
     Dosage: 10000 IU, EVERY WEEKS
     Route: 042
     Dates: start: 200801
  10. CEFUROXIM [Concomitant]
     Indication: PRODUCT USED FOR UNKNOWN INDICATION
     Dosage: 1500MG, EVERY DAYS
     Route: 042
     Dates: start: 20110413, end: 20110522
  11. DECORTIN [Concomitant]
     Indication: PRODUCT USED FOR UNKNOWN INDICATION
     Dosage: 10 MG, EVERY DAYS
     Route: 048
     Dates: start: 20110413
  12. DORMICUM [Concomitant]
     Indication: PRODUCT USED FOR UNKNOWN INDICATION
     Dosage: 4MG, EVERY DAYS
     Route: 042
     Dates: start: 20110521, end: 20110521
  13. DORMICUM [Concomitant]
     Indication: PRODUCT USED FOR UNKNOWN INDICATION
     Dosage: 5MG, EVERY DAYS
     Route: 042
     Dates: start: 20110522, end: 20110522
  14. KETANEST [Concomitant]
     Indication: PRODUCT USED FOR UNKNOWN INDICATION
     Dosage: 15MG, EVERY DAYS
     Route: 042
     Dates: start: 20110521, end: 20110521
  15. KETANEST [Concomitant]
     Indication: PRODUCT USED FOR UNKNOWN INDICATION
     Dosage: 50MG, EVERY DAYS
     Route: 042
     Dates: start: 20110522, end: 20110522
  16. METAMIZOL [Concomitant]
     Indication: PRODUCT USED FOR UNKNOWN INDICATION
     Dosage: 250 MG, EVERY DAY
     Route: 042
     Dates: start: 20110522, end: 20110522
  17. PERFALGAN [Concomitant]
     Indication: PRODUCT USED FOR UNKNOWN INDICATION
     Dosage: 250 MG, EVERY DAYS
     Route: 042
     Dates: start: 20110522, end: 20110522
  18. LASIX [Concomitant]
     Indication: PRODUCT USED FOR UNKNOWN INDICATION
     Dosage: 20 MG, EVERY DAYS
     Route: 042
     Dates: start: 20110521, end: 20110521

REACTIONS (2)
  - Disturbance in attention [Recovering/Resolving]
  - Encephalitis [Recovering/Resolving]
